FAERS Safety Report 7001070-7 (Version None)
Quarter: 2010Q3

REPORT INFORMATION
  Report Type: 
  Country: None (occurrence: None)
  Receive Date: 20100920
  Receipt Date: 20100908
  Transmission Date: 20110219
  Serious: Yes (Hospitalization, Disabling, Other)
  Sender: FDA-Public Use
  Company Number: US-ROCHE-423642

PATIENT
  Sex: Male
  Weight: 81.6 kg

DRUGS (6)
  1. ACCUTANE [Suspect]
     Dosage: INDICATION REPORTED AS CYSTIC ACNE AND FOLLICULITIS.
     Route: 048
     Dates: start: 19920915
  2. ACCUTANE [Suspect]
     Dosage: 40 MG BIWEEKLY AFTER THE FIRST MONTH. 40 MG EVERY THIRD DAY AFTER THE THIRD MONTH.
     Route: 048
     Dates: start: 19970926
  3. ACCUTANE [Suspect]
     Dosage: 40 MG AFTER BIWEEKLY FOR 1 MONTH. 40MG EVERY 10TH DAY AFTER THE SECOND MONTH.
     Route: 048
     Dates: start: 20001127
  4. COZAAR [Concomitant]
     Indication: HYPERTENSION
  5. CLARITIN-D [Concomitant]
  6. FIORICET [Concomitant]

REACTIONS (35)
  - ANHEDONIA [None]
  - ANXIETY [None]
  - CHRONIC FATIGUE SYNDROME [None]
  - COLITIS [None]
  - COLITIS ULCERATIVE [None]
  - CONDITION AGGRAVATED [None]
  - CROHN'S DISEASE [None]
  - DECREASED APPETITE [None]
  - DEPRESSION [None]
  - DISTURBANCE IN ATTENTION [None]
  - ECONOMIC PROBLEM [None]
  - EMOTIONAL DISTRESS [None]
  - FAILURE TO THRIVE [None]
  - FATIGUE [None]
  - FEELING GUILTY [None]
  - FLIGHT OF IDEAS [None]
  - GASTROINTESTINAL DISORDER [None]
  - HYPERTENSION [None]
  - HYPOPHOSPHATAEMIA [None]
  - INCREASED APPETITE [None]
  - INFLAMMATORY BOWEL DISEASE [None]
  - INJURY [None]
  - INSOMNIA [None]
  - INTESTINAL HAEMORRHAGE [None]
  - IRRITABILITY [None]
  - MICTURITION URGENCY [None]
  - PAIN [None]
  - RESTLESSNESS [None]
  - SINUS ARRHYTHMIA [None]
  - SUICIDAL IDEATION [None]
  - SUPRAVENTRICULAR TACHYCARDIA [None]
  - UNEVALUABLE EVENT [None]
  - URINARY INCONTINENCE [None]
  - URINARY RETENTION [None]
  - WEIGHT DECREASED [None]
